FAERS Safety Report 5236454-0 (Version None)
Quarter: 2007Q1

REPORT INFORMATION
  Report Type: 
  Country: None (occurrence: None)
  Receive Date: 20070208
  Receipt Date: 20070123
  Transmission Date: 20070707
  Serious: Yes (Hospitalization)
  Sender: FDA-Public Use
  Company Number: DSA_29316_2007

PATIENT
  Age: 73 Year
  Sex: Male

DRUGS (3)
  1. TILDIEM XR [Suspect]
     Indication: HYPERTENSION
     Dosage: 200 MG QD PO
     Route: 048
     Dates: start: 20010101
  2. OMNIC [Concomitant]
  3. DAROLAN HOESTPRIKKELDEMPEND [Concomitant]

REACTIONS (1)
  - SINUS ARREST [None]
